FAERS Safety Report 12627946 (Version 1)
Quarter: 2016Q3

REPORT INFORMATION
  Report Type: Spontaneous
  Country: JP (occurrence: JP)
  Receive Date: 20160807
  Receipt Date: 20160807
  Transmission Date: 20161109
  Serious: Yes (Other)
  Sender: FDA-Public Use
  Company Number: PHJP2016JP022216

PATIENT

DRUGS (1)
  1. TASIGNA [Suspect]
     Active Substance: NILOTINIB
     Indication: CHRONIC MYELOID LEUKAEMIA
     Dosage: 600 MG, UNK
     Route: 048
     Dates: start: 201509

REACTIONS (5)
  - Alanine aminotransferase increased [Unknown]
  - Hepatitis acute [Not Recovered/Not Resolved]
  - Cytomegalovirus test positive [Unknown]
  - Headache [Unknown]
  - Aspartate aminotransferase increased [Unknown]
